FAERS Safety Report 9637408 (Version 3)
Quarter: 2014Q1

REPORT INFORMATION
  Report Type: Spontaneous
  Country: JP (occurrence: JP)
  Receive Date: 20131022
  Receipt Date: 20140331
  Transmission Date: 20141002
  Serious: Yes (Hospitalization)
  Sender: FDA-Public Use
  Company Number: JP-SA-2013SA104876

PATIENT
  Age: 39 Year
  Sex: Female

DRUGS (1)
  1. DDAVP [Suspect]
     Indication: DIABETES INSIPIDUS
     Route: 045

REACTIONS (1)
  - Hypertrophic cardiomyopathy [Recovered/Resolved]
